FAERS Safety Report 9144227 (Version 2)
Quarter: 2013Q2

REPORT INFORMATION
  Report Type: Spontaneous
  Country: US (occurrence: US)
  Receive Date: 20130306
  Receipt Date: 20130513
  Transmission Date: 20140414
  Serious: No
  Sender: FDA-Public Use
  Company Number: US-ASTRAZENECA-2013SE13310

PATIENT
  Sex: Female
  Weight: 90.7 kg

DRUGS (2)
  1. SEROQUEL XR [Suspect]
     Indication: BIPOLAR DISORDER
     Route: 048
     Dates: start: 20130321, end: 20130323
  2. LAMICTAL [Concomitant]

REACTIONS (1)
  - Hangover [Recovered/Resolved]
